FAERS Safety Report 10327128 (Version 2)
Quarter: 2015Q1

REPORT INFORMATION
  Report Type: Other
  Country: US (occurrence: US)
  Receive Date: 20140720
  Receipt Date: 20150323
  Transmission Date: 20150720
  Serious: Yes (Hospitalization, Other)
  Sender: FDA-Public Use
  Company Number: US-GSKPPD-2014GSK041919

PATIENT
  Age: 69 Year
  Sex: Female

DRUGS (7)
  1. COREG [Concomitant]
     Active Substance: CARVEDILOL
     Route: 048
  2. LASIX [Concomitant]
     Active Substance: FUROSEMIDE
  3. APRESOLINE HYDROCHLORIDE [Concomitant]
     Active Substance: HYDRALAZINE HYDROCHLORIDE
     Route: 048
  4. LOVENOX [Concomitant]
     Active Substance: ENOXAPARIN SODIUM
     Dosage: FOR TEN DAYS THEN DISCONTINUED.
     Route: 058
  5. ISORDIL [Concomitant]
     Active Substance: ISOSORBIDE DINITRATE
  6. AVANDIA [Suspect]
     Active Substance: ROSIGLITAZONE MALEATE
     Indication: DIABETES MELLITUS
     Dosage: AVANDIA WAS NOT LISTED AMONG THE PATIENTS RECORDS REVIEWED.
     Route: 048
  7. CLONIDINE. [Concomitant]
     Active Substance: CLONIDINE
     Dosage: AS NEED FOR BLOOD PRESSURE GREATER THAN 160 OVER 100

REACTIONS (1)
  - Cardiac failure congestive [Unknown]

NARRATIVE: CASE EVENT DATE: 20100325
